FAERS Safety Report 7405190-4 (Version None)
Quarter: 2011Q2

REPORT INFORMATION
  Report Type: 
  Country: None (occurrence: None)
  Receive Date: 20110411
  Receipt Date: 20110401
  Transmission Date: 20111010
  Serious: Yes (Hospitalization)
  Sender: FDA-Public Use
  Company Number: US-BRISTOL-MYERS SQUIBB COMPANY-15650062

PATIENT
  Age: 68 Year
  Sex: Male
  Weight: 93 kg

DRUGS (3)
  1. TAXOL [Suspect]
     Indication: OESOPHAGEAL ADENOCARCINOMA
     Dosage: LAST DOSE:21MAR2011
     Dates: start: 20110223
  2. CISPLATIN [Suspect]
     Indication: OESOPHAGEAL ADENOCARCINOMA
     Dosage: LAST DOSE:21MAR2011 DELAYED BY 7 DAYS
     Dates: start: 20110223
  3. ERBITUX [Suspect]
     Indication: OESOPHAGEAL ADENOCARCINOMA
     Dosage: LAST DOSE: 21MAR2011 DELAYED BY 7 DAYS
     Dates: start: 20110223

REACTIONS (5)
  - INFECTION [None]
  - ASTHENIA [None]
  - HYPOTENSION [None]
  - OESOPHAGITIS [None]
  - DEHYDRATION [None]
